FAERS Safety Report 14609840 (Version 1)
Quarter: 2018Q1

REPORT INFORMATION
  Report Type: Spontaneous
  Country: DE (occurrence: DE)
  Receive Date: 20180307
  Receipt Date: 20180307
  Transmission Date: 20180509
  Serious: Yes (Life-Threatening)
  Sender: FDA-Public Use
  Company Number: DE-TEVA-2018-DE-863369

PATIENT
  Sex: Male
  Weight: 66 kg

DRUGS (17)
  1. MARCUMAR [Concomitant]
     Active Substance: PHENPROCOUMON
     Indication: PREMEDICATION
     Dosage: DOSAGE UNKNOWN
     Route: 048
  2. JANUVIA [Concomitant]
     Active Substance: SITAGLIPTIN PHOSPHATE
     Indication: PREMEDICATION
     Dosage: DOSAGE UNKNOWN
     Route: 048
  3. IRINOMEDAC [Concomitant]
     Indication: COLON CANCER
     Dosage: LAST ADMINISTRATION BEFORE ONSET: 27-AUG-2015?ON DAY 8,22,36, CYCLICAL DAY 50
     Route: 042
     Dates: start: 20150820, end: 20150924
  4. HERVIROS [Concomitant]
     Route: 048
  5. NYSTATIN. [Concomitant]
     Active Substance: NYSTATIN
     Indication: PROPHYLAXIS
     Route: 048
  6. AVASTIN [Concomitant]
     Active Substance: BEVACIZUMAB
     Indication: COLON CANCER
     Route: 042
     Dates: start: 20150820
  7. LOPERAMIDE [Concomitant]
     Active Substance: LOPERAMIDE
     Route: 048
  8. ALLOPURINOL. [Concomitant]
     Active Substance: ALLOPURINOL
     Indication: PREMEDICATION
     Dosage: DOSAGE UNKNOWN
     Route: 048
  9. NITRENDIPINE [Concomitant]
     Active Substance: NITRENDIPINE
     Indication: PREMEDICATION
     Dosage: DOSAGE UNKNOWN
     Route: 048
  10. FLUOROURACIL. [Suspect]
     Active Substance: FLUOROURACIL
     Indication: COLON CANCER
     Dosage: ON DAY 1,8,15,22,29,36, CYCLICAL DAY 50
     Route: 042
     Dates: start: 20150820
  11. KAMILLOSAN [Concomitant]
     Indication: PROPHYLAXIS
     Dosage: ON DAY 1 AND FOLLOWING
     Route: 065
  12. GRANISETRON [Concomitant]
     Active Substance: GRANISETRON
     Indication: PREMEDICATION
     Route: 042
     Dates: start: 20150820
  13. ATROPINE SULFATE. [Concomitant]
     Active Substance: ATROPINE SULFATE
     Indication: PREMEDICATION
     Dosage: ON DAY 8,22,36
     Route: 042
     Dates: start: 20150820
  14. DISODIUM FOLINATE [Concomitant]
     Indication: COLON CANCER
     Dosage: ON DAY 1,8,15,22,29,36, CYCLICAL DAY 50
     Route: 042
     Dates: start: 20150820
  15. METOCLOPRAMIDE. [Concomitant]
     Active Substance: METOCLOPRAMIDE
     Indication: PROPHYLAXIS
     Dosage: DOSAGE UNKNOWN?ON DAY 1,15,29
     Route: 065
  16. ASS 100 [Concomitant]
     Active Substance: ASPIRIN
     Indication: PREMEDICATION
     Dosage: DOSAGE UNKNOWN
     Route: 048
  17. KEVATRIL [Concomitant]
     Active Substance: GRANISETRON HYDROCHLORIDE
     Indication: PROPHYLAXIS
     Dosage: DOSAGE UNKOWN?ON DAY 8,22,36
     Route: 065

REACTIONS (1)
  - Cardiac arrest [Recovered/Resolved]

NARRATIVE: CASE EVENT DATE: 20150827
